FAERS Safety Report 5793100-5 (Version None)
Quarter: 2008Q2

REPORT INFORMATION
  Report Type: 
  Country: None (occurrence: None)
  Receive Date: 20080627
  Receipt Date: 20080613
  Transmission Date: 20081010
  Serious: Yes (Other)
  Sender: FDA-Public Use
  Company Number: PHHY2008JP11179

PATIENT

DRUGS (2)
  1. TEGRETOL [Suspect]
     Indication: PAIN
     Dosage: UNK
     Dates: end: 20080609
  2. TEGRETOL [Suspect]
     Indication: HYPOAESTHESIA

REACTIONS (2)
  - EYE PAIN [None]
  - VISUAL ACUITY REDUCED [None]
